FAERS Safety Report 14576592 (Version 1)
Quarter: 2018Q1

REPORT INFORMATION
  Report Type: Spontaneous
  Country: US (occurrence: US)
  Receive Date: 20180227
  Receipt Date: 20180227
  Transmission Date: 20180509
  Serious: No
  Sender: FDA-Public Use
  Company Number: PHEH2018US006889

PATIENT
  Sex: Female

DRUGS (1)
  1. TACROLIMUS. [Suspect]
     Active Substance: TACROLIMUS
     Indication: ECZEMA EYELIDS
     Dosage: 0.1 %, PRN (AS NEEDED)
     Route: 065
     Dates: start: 20170531

REACTIONS (1)
  - Accidental exposure to product [Unknown]
